FAERS Safety Report 20101977 (Version 2)
Quarter: 2021Q4

REPORT INFORMATION
  Report Type: Spontaneous
  Country: US (occurrence: US)
  Receive Date: 20211123
  Receipt Date: 20211123
  Transmission Date: 20220303
  Serious: Yes (Other)
  Sender: FDA-Public Use
  Company Number: US-CELGENE-USA-20211105309

PATIENT
  Age: 69 Year
  Sex: Male
  Weight: 83.8 kg

DRUGS (3)
  1. ABRAXANE [Suspect]
     Active Substance: PACLITAXEL
     Indication: Lung neoplasm malignant
     Dosage: 130 MILLIGRAM
     Route: 041
     Dates: start: 20211026, end: 20211109
  2. TAXOL [Suspect]
     Active Substance: PACLITAXEL
     Indication: Lung neoplasm malignant
     Dosage: 50 MILLIGRAM/SQ. METER
     Route: 065
     Dates: start: 20211116
  3. DECADRON [Concomitant]
     Active Substance: DEXAMETHASONE
     Indication: Product used for unknown indication
     Route: 041

REACTIONS (6)
  - Bradycardia [Unknown]
  - Breath sounds abnormal [Unknown]
  - Cyanosis [Unknown]
  - Feeling cold [Unknown]
  - Chest discomfort [Unknown]
  - Hypotension [Unknown]

NARRATIVE: CASE EVENT DATE: 20211101
